FAERS Safety Report 4449043-2 (Version None)
Quarter: 2004Q3

REPORT INFORMATION
  Report Type: 
  Country: None (occurrence: None)
  Receive Date: 20040909
  Receipt Date: 20040824
  Transmission Date: 20050211
  Serious: Yes (Hospitalization)
  Sender: FDA-Public Use
  Company Number: USA040876290

PATIENT
  Age: 44 Year
  Sex: Female
  Weight: 68 kg

DRUGS (3)
  1. HUMALOG [Suspect]
     Indication: DIABETES MELLITUS
     Dosage: 12 U/3 AS NEEDED
     Dates: start: 20020101
  2. HUMULIN N [Suspect]
     Indication: DIABETES MELLITUS
     Dosage: 29 U/2 DAY
     Dates: start: 20000101, end: 20010101
  3. LANTUS [Concomitant]

REACTIONS (10)
  - ABDOMINAL PAIN [None]
  - BLOOD GLUCOSE INCREASED [None]
  - BODY HEIGHT DECREASED [None]
  - BONE DISORDER [None]
  - CERVICAL VERTEBRA INJURY [None]
  - CONSTIPATION [None]
  - ENDOMETRIOSIS [None]
  - MOTOR DYSFUNCTION [None]
  - OSTEOPOROSIS [None]
  - TOOTH LOSS [None]
